FAERS Safety Report 12354779 (Version 1)
Quarter: 2016Q2

REPORT INFORMATION
  Report Type: Spontaneous
  Country: US (occurrence: US)
  Receive Date: 20160511
  Receipt Date: 20160511
  Transmission Date: 20160815
  Serious: No
  Sender: FDA-Public Use
  Company Number: US-APOTEX-2015AP015607

PATIENT
  Age: 33 Year
  Sex: Female

DRUGS (1)
  1. TOPIRAMATE. [Suspect]
     Active Substance: TOPIRAMATE
     Indication: BENIGN INTRACRANIAL HYPERTENSION
     Dosage: 100 MG, QID
     Route: 065

REACTIONS (1)
  - Visual perseveration [Recovered/Resolved]
